FAERS Safety Report 20984201 (Version 1)
Quarter: 2022Q2

REPORT INFORMATION
  Report Type: Spontaneous
  Country: US (occurrence: US)
  Receive Date: 20220621
  Receipt Date: 20220621
  Transmission Date: 20220720
  Serious: No
  Sender: FDA-Public Use
  Company Number: US-drreddys-SPO/USA/22/0151131

PATIENT
  Age: 17 Year

DRUGS (1)
  1. ZENATANE [Suspect]
     Active Substance: ISOTRETINOIN
     Indication: Acne cystic
     Dosage: RM ISSUE DATE: 16 NOVEMBER 2021 12:00:00 AM, 16 FEBRUARY 2022 07:17:01 AM AND 18 APRIL 2022 02:51:18

REACTIONS (2)
  - Dysphagia [Unknown]
  - Product use in unapproved indication [Unknown]
